FAERS Safety Report 5048982-1 (Version None)
Quarter: 2006Q3

REPORT INFORMATION
  Report Type: 
  Country: None (occurrence: None)
  Receive Date: 20060712
  Receipt Date: 20051103
  Transmission Date: 20061208
  Serious: No
  Sender: FDA-Public Use
  Company Number: US-GLAXOSMITHKLINE-A0580850A

PATIENT
  Age: 63 Year
  Sex: Female

DRUGS (4)
  1. IMITREX [Suspect]
     Indication: MIGRAINE
     Dosage: 50MG AS REQUIRED
     Route: 048
     Dates: start: 20050101
  2. TYLENOL (CAPLET) [Concomitant]
  3. PREDNISONE [Concomitant]
  4. FORTEO [Concomitant]

REACTIONS (1)
  - NAUSEA [None]
